FAERS Safety Report 6711082-6 (Version None)
Quarter: 2010Q2

REPORT INFORMATION
  Report Type: 
  Country: None (occurrence: None)
  Receive Date: 20100505
  Receipt Date: 20090731
  Transmission Date: 20101027
  Serious: No
  Sender: FDA-Public Use
  Company Number: US-KINGPHARMUSA00001-K200900913

PATIENT
  Sex: Female
  Weight: 86.168 kg

DRUGS (3)
  1. AVINZA [Suspect]
     Indication: NEUROPATHY PERIPHERAL
     Dosage: ^35 MG,^ QD
     Route: 048
     Dates: start: 20090501
  2. METFORMIN [Suspect]
     Indication: DIABETES MELLITUS
     Dosage: 500 MG, BID
     Dates: start: 20050101
  3. MORPHINE SULFATE [Concomitant]
     Indication: BREAKTHROUGH PAIN
     Dosage: 15 MG, TID
     Route: 048

REACTIONS (2)
  - BLOOD GLUCOSE INCREASED [None]
  - MALAISE [None]
